FAERS Safety Report 17559365 (Version 1)
Quarter: 2020Q1

REPORT INFORMATION
  Report Type: Spontaneous
  Country: US (occurrence: US)
  Receive Date: 20200311
  Receipt Date: 20200311
  Transmission Date: 20200409
  Serious: Yes (Hospitalization)
  Sender: FDA-Public Use
  Company Number: None

PATIENT
  Age: 57 Year
  Sex: Male

DRUGS (17)
  1. UPTRAVI [Concomitant]
     Active Substance: SELEXIPAG
  2. BUMETANIDE. [Concomitant]
     Active Substance: BUMETANIDE
  3. TADALAFIL. [Concomitant]
     Active Substance: TADALAFIL
  4. ONDANSETRON [Concomitant]
     Active Substance: ONDANSETRON
  5. FERROUS SULFATE. [Concomitant]
     Active Substance: FERROUS SULFATE
  6. GABAPENTIN. [Concomitant]
     Active Substance: GABAPENTIN
  7. ATORVASATIN [Concomitant]
  8. NYSTATIN TOPICAL POWDER [Concomitant]
  9. ADVAIR DISKUS [Concomitant]
     Active Substance: FLUTICASONE PROPIONATE\SALMETEROL XINAFOATE
  10. OMEPRAZOLE. [Concomitant]
     Active Substance: OMEPRAZOLE
  11. HUMULIN R [Concomitant]
     Active Substance: INSULIN HUMAN
  12. VENTOLIN HFA [Concomitant]
     Active Substance: ALBUTEROL SULFATE
  13. AMBRISENTAN 5MG TABLETS 30/BO: 5MG [Suspect]
     Active Substance: AMBRISENTAN
     Indication: PULMONARY ARTERIAL HYPERTENSION
     Route: 048
     Dates: start: 202001
  14. SPIRONOLACTONE. [Concomitant]
     Active Substance: SPIRONOLACTONE
  15. HUMULIN N [Concomitant]
     Active Substance: INSULIN HUMAN
  16. DIGOXIN. [Concomitant]
     Active Substance: DIGOXIN
  17. SIMETHICONE (DIMETHICONE) [Concomitant]
     Active Substance: DIMETHICONE

REACTIONS (2)
  - Laboratory test abnormal [None]
  - Cardiac failure [None]

NARRATIVE: CASE EVENT DATE: 20200218
